FAERS Safety Report 4303444-1 (Version None)
Quarter: 2004Q1

REPORT INFORMATION
  Report Type: 
  Country: None (occurrence: None)
  Receive Date: 20040223
  Receipt Date: 20040216
  Transmission Date: 20041129
  Serious: Yes (Hospitalization, Other)
  Sender: FDA-Public Use
  Company Number: 2003-10-0007

PATIENT
  Age: 74 Year
  Sex: Male

DRUGS (11)
  1. INTRON A [Suspect]
     Indication: METASTATIC RENAL CELL CARCINOMA
     Dosage: 12-17 MIU SUBCUTANEOUS; SEE IMAGE
     Route: 058
     Dates: start: 20030804, end: 20030822
  2. INTRON A [Suspect]
     Indication: METASTATIC RENAL CELL CARCINOMA
     Dosage: 12-17 MIU SUBCUTANEOUS; SEE IMAGE
     Route: 058
     Dates: start: 20030825, end: 20030825
  3. INTRON A [Suspect]
     Indication: METASTATIC RENAL CELL CARCINOMA
     Dosage: 12-17 MIU SUBCUTANEOUS; SEE IMAGE
     Route: 058
     Dates: start: 20030804, end: 20030922
  4. INTRON A [Suspect]
     Indication: METASTATIC RENAL CELL CARCINOMA
     Dosage: 12-17 MIU SUBCUTANEOUS; SEE IMAGE
     Route: 058
     Dates: start: 20030901, end: 20030922
  5. INTERLEUKIN-2 INJECTABLE SOLUTION [Suspect]
     Indication: METASTATIC RENAL CELL CARCINOMA
     Dosage: 20-19MIU BID SUBCUTANEOUS
     Route: 058
     Dates: start: 20030806, end: 20030808
  6. INTERLEUKIN-2 INJECTABLE SOLUTION [Suspect]
     Indication: METASTATIC RENAL CELL CARCINOMA
     Dosage: 20-19MIU BID SUBCUTANEOUS
     Route: 058
     Dates: start: 20030811, end: 20030822
  7. INTERLEUKIN-2 INJECTABLE SOLUTION [Suspect]
     Indication: METASTATIC RENAL CELL CARCINOMA
     Dosage: 20-19MIU BID SUBCUTANEOUS
     Route: 058
     Dates: start: 20030806, end: 20030829
  8. INTERLEUKIN-2 INJECTABLE SOLUTION [Suspect]
     Indication: METASTATIC RENAL CELL CARCINOMA
     Dosage: 20-19MIU BID SUBCUTANEOUS
     Route: 058
     Dates: start: 20030827, end: 20030829
  9. FLUOROURACIL [Suspect]
     Indication: METASTATIC RENAL CELL CARCINOMA
     Dosage: 1500MG QWK INTRAVENOUS
     Route: 042
     Dates: start: 20030901, end: 20030922
  10. LOPERAMIDE HCL [Concomitant]
  11. DOMPERIDONE [Concomitant]

REACTIONS (9)
  - BLOOD BILIRUBIN INCREASED [None]
  - BLOOD POTASSIUM DECREASED [None]
  - CONFUSIONAL STATE [None]
  - DEHYDRATION [None]
  - NAUSEA [None]
  - NEUTROPENIA [None]
  - PLATELET COUNT DECREASED [None]
  - PYREXIA [None]
  - VOMITING [None]
